FAERS Safety Report 9356844 (Version 1)
Quarter: 2013Q2

REPORT INFORMATION
  Report Type: Spontaneous
  Country: SK (occurrence: SK)
  Receive Date: 20130620
  Receipt Date: 20130620
  Transmission Date: 20140414
  Serious: Yes (Death)
  Sender: FDA-Public Use
  Company Number: SK-ROCHE-1238139

PATIENT
  Sex: Male

DRUGS (12)
  1. LUCENTIS [Suspect]
     Indication: DIABETIC RETINAL OEDEMA
     Route: 050
     Dates: start: 20130411
  2. PREDNISONE [Concomitant]
  3. LOSARTAN [Concomitant]
  4. IMURAN [Concomitant]
  5. LOMAC [Concomitant]
  6. ENELBIN (SLOVAKIA) [Concomitant]
  7. TRENTAL [Concomitant]
  8. THIOCTACID [Concomitant]
  9. DOBICA [Concomitant]
  10. NOVORAPID [Concomitant]
  11. LANTUS [Concomitant]
  12. SUFENTA [Concomitant]

REACTIONS (2)
  - Myocardial infarction [Fatal]
  - Cardiac arrest [Fatal]
